FAERS Safety Report 4790627-X (Version None)
Quarter: 2005Q4

REPORT INFORMATION
  Report Type: 
  Country: None (occurrence: None)
  Receive Date: 20051006
  Receipt Date: 20050609
  Transmission Date: 20060501
  Serious: Yes (Life-Threatening, Hospitalization, Other)
  Sender: FDA-Public Use
  Company Number: US-MERCK-0506USA01687

PATIENT
  Age: 77 Year
  Sex: Female
  Weight: 63 kg

DRUGS (7)
  1. VIOXX [Suspect]
     Indication: ARTHRITIS
     Route: 048
     Dates: start: 20000501, end: 20041201
  2. DILANTIN [Concomitant]
     Route: 048
     Dates: start: 19900101
  3. VITAMINS (UNSPECIFIED) [Concomitant]
     Route: 065
     Dates: end: 20041224
  4. OS-CAL + D [Concomitant]
     Indication: BONE DISORDER
     Route: 065
     Dates: start: 19860101
  5. ASCORBIC ACID [Concomitant]
     Route: 065
     Dates: start: 20040101
  6. FOSAMAX [Concomitant]
     Route: 048
  7. ZYPREXA [Concomitant]
     Route: 048

REACTIONS (9)
  - ANAEMIA [None]
  - CONVULSION [None]
  - CORONARY ARTERY THROMBOSIS [None]
  - CYSTOCELE [None]
  - DIABETES MELLITUS [None]
  - HYPONATRAEMIA [None]
  - OSTEOARTHRITIS [None]
  - PULMONARY EMBOLISM [None]
  - RHINORRHOEA [None]
